FAERS Safety Report 8698825 (Version 2)
Quarter: 2013Q4

REPORT INFORMATION
  Report Type: Spontaneous
  Country: US (occurrence: US)
  Receive Date: 20120802
  Receipt Date: 20131105
  Transmission Date: 20140711
  Serious: Yes (Other)
  Sender: FDA-Public Use
  Company Number: US-009507513-1207USA011294

PATIENT
  Age: 58 Year
  Sex: Female

DRUGS (5)
  1. ZOCOR [Suspect]
     Dosage: 20 MG, UNK
     Route: 048
  2. ACTIQ [Suspect]
     Dosage: 600 MICROGRAM, UNK
     Route: 048
  3. CALCIMAGON /00751501/ [Suspect]
     Dosage: 500 MG, UNK
     Route: 048
  4. METOJECT [Suspect]
     Dosage: 2.857 MG, UNK
     Route: 058
  5. VOLTAREN [Suspect]
     Dosage: 200 MG, UNK
     Route: 048

REACTIONS (3)
  - Weight decreased [Unknown]
  - Diarrhoea [Unknown]
  - Off label use [Unknown]
